FAERS Safety Report 25032064 (Version 4)
Quarter: 2025Q3

REPORT INFORMATION
  Report Type: Spontaneous
  Country: JP (occurrence: JP)
  Receive Date: 20250303
  Receipt Date: 20250916
  Transmission Date: 20251020
  Serious: Yes (Other)
  Sender: OTSUKA
  Company Number: JP-MMM-Otsuka-FDTOY81I

PATIENT
  Age: 77 Year
  Sex: Male

DRUGS (8)
  1. REXULTI [Suspect]
     Active Substance: BREXPIPRAZOLE
     Indication: Dementia Alzheimer^s type
     Dosage: 0.5MG/DAY
     Route: 048
     Dates: start: 20241223, end: 20250107
  2. REXULTI [Suspect]
     Active Substance: BREXPIPRAZOLE
     Indication: Irritability
  3. REXULTI [Suspect]
     Active Substance: BREXPIPRAZOLE
     Indication: Aggression
  4. REXULTI [Suspect]
     Active Substance: BREXPIPRAZOLE
     Indication: Agitation
  5. REXULTI [Suspect]
     Active Substance: BREXPIPRAZOLE
     Indication: Poriomania
  6. MEMANTINE HYDROCHLORIDE [Suspect]
     Active Substance: MEMANTINE HYDROCHLORIDE
     Indication: Dementia Alzheimer^s type
     Dosage: 10MG/DAY
     Route: 048
     Dates: start: 20241223
  7. MEMANTINE HYDROCHLORIDE [Suspect]
     Active Substance: MEMANTINE HYDROCHLORIDE
     Dosage: 5MG/DAY
     Route: 048
     Dates: end: 20241222
  8. DONEPEZIL HYDROCHLORIDE [Concomitant]
     Active Substance: DONEPEZIL HYDROCHLORIDE
     Indication: Product used for unknown indication
     Route: 048

REACTIONS (1)
  - Urinary retention [Recovered/Resolved]
